FAERS Safety Report 5259669-4 (Version None)
Quarter: 2007Q1

REPORT INFORMATION
  Report Type: 
  Country: None (occurrence: None)
  Receive Date: 20070307
  Receipt Date: 20070307
  Transmission Date: 20070707
  Serious: Yes (Hospitalization)
  Sender: FDA-Public Use
  Company Number: None

PATIENT
  Age: 71 Year
  Sex: Male
  Weight: 75.3 kg

DRUGS (3)
  1. LISINOPRIL [Suspect]
     Indication: HYPERTENSION
     Dosage: 40MG DAILY PO
     Route: 048
  2. TRAZODONE HCL [Suspect]
     Indication: AFFECTIVE DISORDER
     Dosage: 25MG QHS PO
     Route: 048
  3. TRAZODONE HCL [Suspect]
     Indication: SLEEP DISORDER
     Dosage: 25MG QHS PO
     Route: 048

REACTIONS (10)
  - BACK PAIN [None]
  - CONSTIPATION [None]
  - DECREASED APPETITE [None]
  - DEHYDRATION [None]
  - DIZZINESS [None]
  - FALL [None]
  - HYPOTENSION [None]
  - NECK PAIN [None]
  - NIGHT SWEATS [None]
  - WEIGHT DECREASED [None]
